FAERS Safety Report 14368050 (Version 4)
Quarter: 2018Q2

REPORT INFORMATION
  Report Type: Spontaneous
  Country: US (occurrence: US)
  Receive Date: 20180109
  Receipt Date: 20180409
  Transmission Date: 20180711
  Serious: Yes (Other)
  Sender: FDA-Public Use
  Company Number: US-TARO-2017TAR01115

PATIENT
  Age: 7 Year
  Sex: Female
  Weight: 22.68 kg

DRUGS (4)
  1. LORATADINE SYRUP (LORATADINE ORAL SOLUTION USP) 5MG/5ML [Suspect]
     Active Substance: LORATADINE
     Indication: ALLERGY TO ANIMAL
  2. PREDNISOLONE (QUALITEST OR PAR) [Suspect]
     Active Substance: PREDNISOLONE
     Dosage: UNK
  3. LORATADINE SYRUP (LORATADINE ORAL SOLUTION USP) 5MG/5ML [Suspect]
     Active Substance: LORATADINE
     Indication: RASH
     Dosage: UNK
     Route: 048
     Dates: start: 20171127, end: 20171129
  4. LORATADINE SYRUP (LORATADINE ORAL SOLUTION USP) 5MG/5ML [Suspect]
     Active Substance: LORATADINE
     Indication: URTICARIA

REACTIONS (8)
  - Product quality issue [Not Recovered/Not Resolved]
  - Product tampering [Not Recovered/Not Resolved]
  - Scar [Not Recovered/Not Resolved]
  - Blood lead increased [Not Recovered/Not Resolved]
  - Vomiting [Recovered/Resolved]
  - Lethargy [Recovered/Resolved]
  - Pruritus generalised [Not Recovered/Not Resolved]
  - Munchausen^s syndrome [Unknown]

NARRATIVE: CASE EVENT DATE: 20171130
